FAERS Safety Report 6311528-1 (Version None)
Quarter: 2009Q3

REPORT INFORMATION
  Report Type: 
  Country: None (occurrence: None)
  Receive Date: 20090817
  Receipt Date: 20090807
  Transmission Date: 20100115
  Serious: Yes (Hospitalization)
  Sender: FDA-Public Use
  Company Number: AU-NOVOPROD-290292

PATIENT
  Age: 69 Year
  Sex: Male

DRUGS (1)
  1. NOVOMIX 30 FLEXPEN [Suspect]
     Indication: TYPE 2 DIABETES MELLITUS
     Dosage: 64 IU, QD (28 IU AM + 36 IU PM)
     Dates: start: 20090201

REACTIONS (2)
  - HYPERGLYCAEMIA [None]
  - MYOCARDIAL INFARCTION [None]
